FAERS Safety Report 4662458-2 (Version None)
Quarter: 2005Q2

REPORT INFORMATION
  Report Type: 
  Country: None (occurrence: None)
  Receive Date: 20050513
  Receipt Date: 20050513
  Transmission Date: 20051028
  Serious: Yes (Hospitalization)
  Sender: FDA-Public Use
  Company Number: None

PATIENT
  Age: 77 Year
  Sex: Male
  Weight: 95.2554 kg

DRUGS (2)
  1. VANCOMYCIN [Suspect]
     Indication: OSTEOMYELITIS
     Dosage: 1 GRAM  EVERY 12 HRS  INTRAVENOUS
     Route: 042
     Dates: start: 20050421, end: 20050501
  2. INVANZ [Suspect]
     Dosage: 1 GRAM  EVERY 24 HRS  INTRAVENOUS
     Route: 042
     Dates: start: 20050421, end: 20050425

REACTIONS (5)
  - CONFUSIONAL STATE [None]
  - DIARRHOEA [None]
  - INSOMNIA [None]
  - RESTLESSNESS [None]
  - TINNITUS [None]
